FAERS Safety Report 8085401-5 (Version None)
Quarter: 2012Q1

REPORT INFORMATION
  Report Type: 
  Country: None (occurrence: None)
  Receive Date: 20120128
  Receipt Date: 20110523
  Transmission Date: 20120608
  Serious: Yes (Hospitalization)
  Sender: FDA-Public Use
  Company Number: PR-ABBOTT-11P-131-0717140-00

PATIENT
  Sex: Female
  Weight: 77.634 kg

DRUGS (5)
  1. IMURAN [Concomitant]
     Indication: CROHN'S DISEASE
     Dosage: 50MG
     Route: 048
  2. HUMIRA [Suspect]
     Indication: CROHN'S DISEASE
     Route: 058
     Dates: start: 20100826, end: 20110401
  3. BENTYL [Concomitant]
     Indication: CROHN'S DISEASE
     Dosage: 20MG
     Route: 048
  4. HUMIRA [Suspect]
     Dates: start: 20110511
  5. PRILOSEC [Concomitant]
     Indication: GASTRITIS
     Route: 048

REACTIONS (3)
  - CROHN'S DISEASE [None]
  - ASTHMA [None]
  - DRUG INEFFECTIVE [None]
